FAERS Safety Report 7708373-9 (Version None)
Quarter: 2011Q3

REPORT INFORMATION
  Report Type: 
  Country: None (occurrence: None)
  Receive Date: 20110825
  Receipt Date: 20101214
  Transmission Date: 20111222
  Serious: No
  Sender: FDA-Public Use
  Company Number: US-BAYER-2010-009361

PATIENT
  Sex: Female

DRUGS (3)
  1. MIRENA [Suspect]
     Dosage: UNK
     Dates: start: 20100108, end: 20101206
  2. INTERFERON [Concomitant]
     Indication: MULTIPLE SCLEROSIS
  3. MIRENA [Suspect]
     Indication: CONTRACEPTION
     Dosage: UNK
     Route: 015
     Dates: start: 20100108, end: 20101206

REACTIONS (4)
  - WEIGHT INCREASED [None]
  - ACNE [None]
  - DEPRESSION [None]
  - NO ADVERSE EVENT [None]
